FAERS Safety Report 8966281 (Version 2)
Quarter: 2013Q1

REPORT INFORMATION
  Report Type: Spontaneous
  Country: US (occurrence: US)
  Receive Date: 20121217
  Receipt Date: 20130115
  Transmission Date: 20140127
  Serious: Yes (Other)
  Sender: FDA-Public Use
  Company Number: US-AMGEN-USASP2012079898

PATIENT
  Age: 57 Year
  Sex: Female
  Weight: 77.55 kg

DRUGS (13)
  1. ENBREL [Suspect]
     Indication: RHEUMATOID ARTHRITIS
     Dosage: 50 MG, WEEKLY
     Route: 058
     Dates: start: 20111005
  2. LYRICA [Concomitant]
     Dosage: 25 MG, TID
     Route: 048
     Dates: start: 20121219
  3. MELOXICAM [Concomitant]
     Dosage: 7.5 MG, QD
     Route: 048
     Dates: start: 20121217
  4. VOLTAREN                           /00372301/ [Concomitant]
     Dosage: 1%,2-4 GM APPLY ON FOOT/ANKLE, QID
     Dates: start: 20121113
  5. SUDAFED                            /00076302/ [Concomitant]
     Dosage: 120 MG, BID
     Route: 048
     Dates: start: 20121012
  6. PROMETHAZINE HCL AND CODEINE PHOSPHATE [Concomitant]
     Dosage: 6.25-10MG, 16 OZ, Q 4-6 PRN
     Dates: start: 20121012
  7. PROCHLORPERAZINE [Concomitant]
     Indication: NAUSEA
     Dosage: 5 MG, Q4H
     Route: 048
     Dates: start: 20120615
  8. IMITREX                            /01044801/ [Concomitant]
     Indication: MIGRAINE
     Dosage: 100 MG, QD
     Route: 048
  9. PRILOSEC                           /00661201/ [Concomitant]
     Dosage: 20 MG, QD
     Route: 048
  10. OSCAL D [Concomitant]
     Dosage: 500-200 MG, QD
     Route: 048
  11. ALIGN [Concomitant]
     Dosage: 4 MG, QD
     Route: 048
  12. CLOBETASOL PROPIONATE [Concomitant]
     Dosage: 0.05%, APPLY TO AFFECTED AREA, BID PRN
  13. ESTRACE [Concomitant]
     Dosage: APPLY TO VAGINAL AREA, 2 G, QWK

REACTIONS (6)
  - Intervertebral disc protrusion [Not Recovered/Not Resolved]
  - VIIth nerve paralysis [Recovered/Resolved]
  - Vulvovaginal pain [Not Recovered/Not Resolved]
  - Vulvovaginal burning sensation [Not Recovered/Not Resolved]
  - Spinal pain [Recovered/Resolved]
  - Vaginal infection [Recovered/Resolved]
